FAERS Safety Report 4276312-1 (Version None)
Quarter: 2004Q1

REPORT INFORMATION
  Report Type: 
  Country: None (occurrence: None)
  Receive Date: 20040120
  Receipt Date: 20040120
  Transmission Date: 20041129
  Serious: No
  Sender: FDA-Public Use
  Company Number: None

PATIENT
  Age: 34 Year
  Sex: Female
  Weight: 82.1011 kg

DRUGS (2)
  1. HALOPERIDOL-D 100MG/ML [Suspect]
     Indication: PSYCHOTIC DISORDER
     Dosage: 300MG Q 4 WEEKS IM
     Route: 030
     Dates: start: 20031110
  2. HALOPERIDOL-D 100MG/ML [Suspect]
     Indication: PSYCHOTIC DISORDER
     Dosage: 300MG Q 4 WEEKS IM
     Route: 030
     Dates: start: 20031208

REACTIONS (5)
  - ERYTHEMA [None]
  - MASS [None]
  - PHARMACEUTICAL PRODUCT COMPLAINT [None]
  - SKIN WARM [None]
  - TENDERNESS [None]
